FAERS Safety Report 25000966 (Version 2)
Quarter: 2025Q2

REPORT INFORMATION
  Report Type: Spontaneous
  Country: US (occurrence: US)
  Receive Date: 20250222
  Receipt Date: 20250510
  Transmission Date: 20250717
  Serious: No
  Sender: SANOFI AVENTIS
  Company Number: US-SA-2025SA050201

PATIENT
  Age: 62 Year
  Sex: Female

DRUGS (5)
  1. DUPIXENT [Suspect]
     Active Substance: DUPILUMAB
     Indication: Dermatitis atopic
     Dosage: 300 MG, QOW
     Route: 058
     Dates: start: 202405, end: 2024
  2. DUPIXENT [Suspect]
     Active Substance: DUPILUMAB
     Route: 058
     Dates: start: 20241017, end: 20241017
  3. DUPIXENT [Suspect]
     Active Substance: DUPILUMAB
     Dosage: 300 MG, QOW
     Route: 058
     Dates: start: 20241102
  4. TERIFLUNOMIDE [Concomitant]
     Active Substance: TERIFLUNOMIDE
  5. BOTOX [Concomitant]
     Active Substance: ONABOTULINUMTOXINA
     Dates: start: 202501

REACTIONS (7)
  - Skin discolouration [Unknown]
  - Condition aggravated [Unknown]
  - Dry skin [Unknown]
  - Rash [Unknown]
  - Urinary tract infection [Unknown]
  - Rebound effect [Unknown]
  - Micturition urgency [Unknown]
